FAERS Safety Report 9859513 (Version 2)
Quarter: 2014Q1

REPORT INFORMATION
  Report Type: Spontaneous
  Country: FR (occurrence: FR)
  Receive Date: 20140131
  Receipt Date: 20140310
  Transmission Date: 20141002
  Serious: Yes (Hospitalization)
  Sender: FDA-Public Use
  Company Number: FR-PFIZER INC-2014026592

PATIENT
  Age: 49 Year
  Sex: Female

DRUGS (15)
  1. XANAX [Suspect]
     Dosage: UNK
     Dates: end: 20131213
  2. KEPPRA [Suspect]
     Indication: STATUS EPILEPTICUS
     Dosage: 1 G, DAILY
     Dates: start: 20131204, end: 20131205
  3. KEPPRA [Suspect]
     Dosage: 1 G, 2X/DAY IN THE MORNING AND IN THE EVENING
     Dates: start: 20131206, end: 20131218
  4. KEPPRA [Suspect]
     Dosage: 1.5 G, DAILY
     Dates: start: 20131219, end: 20131219
  5. KEPPRA [Suspect]
     Dosage: 1 G, DAILY
     Dates: start: 20131220, end: 20131220
  6. KEPPRA [Suspect]
     Dosage: 500 MG, DAILY
     Dates: start: 20131221, end: 20131221
  7. KEPPRA [Suspect]
     Dosage: UNK
     Dates: start: 20131222, end: 20131223
  8. SEROPLEX [Suspect]
     Dosage: UNK
     Dates: end: 20131213
  9. TRANXENE [Suspect]
     Dosage: UNK
     Dates: end: 20131213
  10. PRODILANTIN [Concomitant]
     Indication: STATUS EPILEPTICUS
     Dosage: UNK
     Dates: start: 201312, end: 201312
  11. URBANYL [Concomitant]
     Indication: STATUS EPILEPTICUS
     Dosage: UNK
     Dates: start: 201312, end: 20140112
  12. URBANYL [Concomitant]
     Dosage: 10 UNK, 3X/DAY, 1 IN THE MORNING, 1 AT NOON AND 2 IN THE EVENING
     Dates: end: 20140112
  13. TEMERIT [Concomitant]
     Dosage: 2.5 IN THE MORNING AND 2.5 IN THE EVENING
  14. LOXEN LP [Concomitant]
     Dosage: 50 UNK, 1X/DAY IN THE MORNING
  15. DIFFU-K [Concomitant]
     Dosage: UNK

REACTIONS (4)
  - Hallucination, visual [Recovered/Resolved]
  - Confusional state [Recovered/Resolved]
  - Delirium [Recovered/Resolved]
  - Agitation [Recovered/Resolved]
